FAERS Safety Report 8484215-1 (Version None)
Quarter: 2012Q3

REPORT INFORMATION
  Report Type: 
  Country: None (occurrence: None)
  Receive Date: 20120703
  Receipt Date: 20120629
  Transmission Date: 20120928
  Serious: Yes (Life-Threatening, Other)
  Sender: FDA-Public Use
  Company Number: AU-JNJFOC-20120609018

PATIENT
  Sex: Male
  Weight: 79 kg

DRUGS (1)
  1. STELARA [Suspect]
     Indication: PSORIASIS
     Dosage: AN APPROXIMATE TOTAL OF 9 INJECTIONS
     Route: 058
     Dates: start: 20100910

REACTIONS (1)
  - GASTROINTESTINAL CARCINOMA [None]
